FAERS Safety Report 21928347 (Version 1)
Quarter: 2023Q1

REPORT INFORMATION
  Report Type: Spontaneous
  Country: JP (occurrence: JP)
  Receive Date: 20230130
  Receipt Date: 20230130
  Transmission Date: 20230418
  Serious: Yes (Hospitalization, Other)
  Sender: FDA-Public Use
  Company Number: JP-KYOWAKIRIN-2020AKK006917

PATIENT
  Age: 58 Year
  Sex: Female

DRUGS (26)
  1. ROMIPLOSTIM [Suspect]
     Active Substance: ROMIPLOSTIM
     Indication: Platelet count decreased
     Dosage: 10 MICROGRAM/KILOGRAM
     Route: 058
     Dates: start: 20200401
  2. MYCOPHENOLATE MOFETIL [Concomitant]
     Active Substance: MYCOPHENOLATE MOFETIL
     Indication: Prophylaxis against graft versus host disease
     Dosage: 1000 MG, BID
     Route: 048
     Dates: start: 20200324
  3. CYCLOSPORINE [Concomitant]
     Active Substance: CYCLOSPORINE
     Indication: Prophylaxis against graft versus host disease
     Dosage: 130 MG
     Route: 041
     Dates: start: 20200424
  4. NIFEDIPINE [Concomitant]
     Active Substance: NIFEDIPINE
     Indication: Hypertension
     Dosage: 20 MG, QD
     Route: 048
     Dates: start: 20200325
  5. LETERMOVIR [Concomitant]
     Active Substance: LETERMOVIR
     Indication: Antiviral prophylaxis
     Dosage: 240 MG, QD
     Route: 048
     Dates: start: 20200418
  6. ACYCLOVIR [Concomitant]
     Active Substance: ACYCLOVIR
     Indication: Antiviral prophylaxis
     Dosage: 200 MG, QD
     Route: 048
     Dates: start: 20200423
  7. URSODIOL [Concomitant]
     Active Substance: URSODIOL
     Indication: Hepatobiliary disorder prophylaxis
     Dosage: 200 MG, TID
     Route: 048
     Dates: start: 20200319
  8. ESOMEPRAZOLE MAGNESIUM [Concomitant]
     Active Substance: ESOMEPRAZOLE MAGNESIUM
     Indication: Gastritis prophylaxis
     Dosage: 20 MG, QD
     Route: 048
     Dates: start: 20200319
  9. MIYA-BM [Concomitant]
     Active Substance: CLOSTRIDIUM BUTYRICUM SPORES STRAIN M-55
     Indication: Diarrhoea
     Dosage: 3 G, TID
     Route: 048
     Dates: start: 20200316
  10. CAMPHOR\CAPSICUM\METHYL SALICYLATE [Concomitant]
     Active Substance: CAMPHOR\CAPSICUM\METHYL SALICYLATE
     Indication: Arthralgia
     Dosage: 1 DF, PRN
     Dates: start: 20200324
  11. MICAFUNGIN SODIUM [Concomitant]
     Active Substance: MICAFUNGIN SODIUM
     Indication: Antifungal prophylaxis
     Dosage: 50 MG, QD
     Route: 041
     Dates: start: 20200319
  12. CEFEPIME HYDROCHLORIDE [Concomitant]
     Active Substance: CEFEPIME HYDROCHLORIDE
     Indication: Enteritis infectious
     Dosage: 2 G, BID
     Route: 041
     Dates: start: 20200426
  13. VANCOMYCIN HYDROCHLORIDE [Concomitant]
     Active Substance: VANCOMYCIN HYDROCHLORIDE
     Indication: Enteritis infectious
     Dosage: 750 MG, BID
     Route: 041
     Dates: start: 20200426
  14. SODIUM GUALENATE MONOHYDRATE [Concomitant]
     Active Substance: SODIUM GUALENATE MONOHYDRATE
     Indication: Stomatitis
     Dosage: UNK, SEVERAL TIMES A DAY
     Route: 049
     Dates: start: 20200317
  15. AMINO ACIDS\DEXTROSE\ELECTROLYTES NOS\MINERALS\VITAMINS [Concomitant]
     Active Substance: AMINO ACIDS\DEXTROSE\ELECTROLYTES NOS\MINERALS\VITAMINS
     Indication: Nausea
     Dosage: 1000 ML
     Route: 041
     Dates: start: 20200330
  16. PREGABALIN [Concomitant]
     Active Substance: PREGABALIN
     Indication: Post herpetic neuralgia
     Dosage: 75 MG IN THE MORNING, 100 MG IN THE EVENING
     Route: 048
     Dates: start: 20200417
  17. HYDROCORTISONE SODIUM SUCCINATE [Concomitant]
     Active Substance: HYDROCORTISONE SODIUM SUCCINATE
     Indication: Febrile neutropenia
     Dosage: 100 MG, BID
     Route: 041
     Dates: start: 20200409, end: 20200428
  18. HYDROCORTISONE SODIUM SUCCINATE [Concomitant]
     Active Substance: HYDROCORTISONE SODIUM SUCCINATE
     Indication: Engraftment syndrome
     Dosage: 4000 MILLIGRAM
  19. ACETAMINOPHEN [Concomitant]
     Active Substance: ACETAMINOPHEN
     Indication: Bone pain
     Dosage: 1000 MG, PRN
     Route: 041
     Dates: start: 20200402
  20. ACETAMINOPHEN [Concomitant]
     Active Substance: ACETAMINOPHEN
     Indication: Post herpetic neuralgia
     Dosage: UNK
  21. ACETAMINOPHEN [Concomitant]
     Active Substance: ACETAMINOPHEN
     Indication: Engraftment syndrome
     Dosage: UNK
  22. LOPERAMIDE HYDROCHLORIDE [Concomitant]
     Active Substance: LOPERAMIDE HYDROCHLORIDE
     Indication: Diarrhoea
     Dosage: 1 MG, PRN
     Route: 048
     Dates: start: 20200330
  23. LOPERAMIDE HYDROCHLORIDE [Concomitant]
     Active Substance: LOPERAMIDE HYDROCHLORIDE
     Indication: Engraftment syndrome
     Dosage: UNK
  24. MAGNESIUM SULFATE [Concomitant]
     Active Substance: MAGNESIUM SULFATE
     Indication: Hypomagnesaemia
     Dosage: 20 MEQ
     Route: 041
     Dates: start: 20200410
  25. POTASSIUM CHLORIDE [Concomitant]
     Active Substance: POTASSIUM CHLORIDE
     Indication: Hypokalaemia
     Dosage: 30 MEQ
     Route: 041
     Dates: start: 20200428
  26. DIPHENHYDRAMINE [Concomitant]
     Active Substance: DIPHENHYDRAMINE
     Indication: Engraftment syndrome
     Dosage: UNK, PRN
     Route: 061
     Dates: start: 20200424

REACTIONS (1)
  - Acute graft versus host disease [Recovered/Resolved]

NARRATIVE: CASE EVENT DATE: 20200428
